FAERS Safety Report 6703668-X (Version None)
Quarter: 2010Q2

REPORT INFORMATION
  Report Type: 
  Country: None (occurrence: None)
  Receive Date: 20100430
  Receipt Date: 20100427
  Transmission Date: 20101027
  Serious: Yes (Death, Hospitalization, Other)
  Sender: FDA-Public Use
  Company Number: US-BRISTOL-MYERS SQUIBB COMPANY-15080807

PATIENT
  Age: 49 Year
  Sex: Female
  Weight: 60 kg

DRUGS (11)
  1. CYTOXAN [Suspect]
     Indication: BREAST CANCER
     Route: 042
     Dates: start: 20100210, end: 20100210
  2. ADRIAMYCIN PFS [Suspect]
     Indication: BREAST CANCER
     Route: 042
     Dates: start: 20100210, end: 20100210
  3. TAXOTERE [Suspect]
     Indication: BREAST CANCER
     Dosage: 1DF=80MG VIAL(EXP:31AUG2012)+60MG VIAL(EXP:30JUN2011)-A TOTAL DOSE OF 125MG
     Route: 041
  4. DEXAMETHASONE [Suspect]
  5. NEULASTA [Concomitant]
     Dates: start: 20100211, end: 20100211
  6. EMEND [Concomitant]
     Dates: start: 20100209, end: 20100211
  7. ZOFRAN [Concomitant]
     Dates: start: 20100210, end: 20100210
  8. LORAZEPAM [Concomitant]
  9. COMPAZINE [Concomitant]
     Dates: start: 20100210, end: 20100210
  10. BUSPAR [Concomitant]
  11. FLUOXETINE [Concomitant]

REACTIONS (6)
  - CAECITIS [None]
  - GASTROINTESTINAL NECROSIS [None]
  - INTESTINAL PERFORATION [None]
  - SEPSIS [None]
  - SEPTIC SHOCK [None]
  - WHITE BLOOD CELL COUNT DECREASED [None]
